FAERS Safety Report 13769254 (Version 2)
Quarter: 2017Q3

REPORT INFORMATION
  Report Type: Spontaneous
  Country: JP (occurrence: JP)
  Receive Date: 20170719
  Receipt Date: 20170904
  Transmission Date: 20171127
  Serious: Yes (Other)
  Sender: FDA-Public Use
  Company Number: JP-JNJFOC-20170712448

PATIENT

DRUGS (1)
  1. REMINYL [Suspect]
     Active Substance: GALANTAMINE
     Indication: PRODUCT USED FOR UNKNOWN INDICATION
     Route: 048

REACTIONS (14)
  - Dementia with Lewy bodies [Unknown]
  - Treatment noncompliance [Unknown]
  - Decreased appetite [Unknown]
  - Frequent bowel movements [Unknown]
  - Nausea [Unknown]
  - Drug ineffective [Unknown]
  - Anger [Unknown]
  - Somnolence [Unknown]
  - Therapeutic response increased [Unknown]
  - Cerebral infarction [Unknown]
  - Vomiting [Unknown]
  - Dizziness [Unknown]
  - Hallucination, visual [Unknown]
  - Diarrhoea [Unknown]
